FAERS Safety Report 13941479 (Version 1)
Quarter: 2017Q3

REPORT INFORMATION
  Report Type: Spontaneous
  Country: US (occurrence: None)
  Receive Date: 20170906
  Receipt Date: 20170906
  Transmission Date: 20171127
  Serious: No
  Sender: FDA-Public Use
  Company Number: None

PATIENT
  Age: 52 Year
  Sex: Female

DRUGS (1)
  1. ZYKADIA [Suspect]
     Active Substance: CERITINIB
     Route: 048
     Dates: start: 20170713

REACTIONS (2)
  - International normalised ratio increased [None]
  - Drug interaction [None]

NARRATIVE: CASE EVENT DATE: 20170804
